FAERS Safety Report 17309180 (Version 1)
Quarter: 2020Q1

REPORT INFORMATION
  Report Type: Spontaneous
  Country: JP (occurrence: JP)
  Receive Date: 20200123
  Receipt Date: 20200123
  Transmission Date: 20200409
  Serious: No
  Sender: FDA-Public Use
  Company Number: JP-LUPIN PHARMACEUTICALS INC.-2019-00156

PATIENT
  Age: 73 Year
  Sex: Male
  Weight: 43 kg

DRUGS (7)
  1. PREDNISOLONE. [Concomitant]
     Active Substance: PREDNISOLONE
     Indication: RHEUMATOID ARTHRITIS
     Dosage: UNK
     Route: 065
  2. PREDNISOLONE. [Concomitant]
     Active Substance: PREDNISOLONE
     Indication: INTERSTITIAL LUNG DISEASE
  3. MORPHINE [Suspect]
     Active Substance: MORPHINE
     Indication: DYSPNOEA
  4. AZATHIOPRINE. [Concomitant]
     Active Substance: AZATHIOPRINE
     Indication: RHEUMATOID ARTHRITIS
     Dosage: UNK
     Route: 065
  5. MORPHINE [Suspect]
     Active Substance: MORPHINE
     Indication: RHEUMATOID ARTHRITIS
     Dosage: 2 MG, SINGLE (INJECTION)
     Route: 058
  6. AZATHIOPRINE. [Concomitant]
     Active Substance: AZATHIOPRINE
     Indication: INTERSTITIAL LUNG DISEASE
  7. MORPHINE [Suspect]
     Active Substance: MORPHINE
     Indication: INTERSTITIAL LUNG DISEASE

REACTIONS (5)
  - PO2 decreased [Unknown]
  - Somnolence [Unknown]
  - Respiratory rate decreased [Unknown]
  - Off label use [Unknown]
  - Oxygen saturation decreased [Unknown]
